FAERS Safety Report 15403995 (Version 1)
Quarter: 2018Q3

REPORT INFORMATION
  Report Type: Spontaneous
  Country: US (occurrence: US)
  Receive Date: 20180919
  Receipt Date: 20180919
  Transmission Date: 20181010
  Serious: No
  Sender: FDA-Public Use
  Company Number: US-AVADEL SPECIALTY PHARMACEUTICALS, LLC-2018AVA00117

PATIENT
  Age: 72 Year
  Sex: Male
  Weight: 149.66 kg

DRUGS (6)
  1. FISH OIL [Concomitant]
     Active Substance: FISH OIL
  2. UNSPECIFIED MEDICATION FOR SLEEP [Concomitant]
     Dosage: UNK, AS NEEDED
  3. CO?Q 10 [Concomitant]
     Active Substance: UBIDECARENONE
  4. VITAMIN D [Concomitant]
     Active Substance: CHOLECALCIFEROL
  5. NOCTIVA [Suspect]
     Active Substance: DESMOPRESSIN ACETATE
     Indication: NOCTURIA
     Dosage: 1.66 ?G, 1X/DAY IN ALTERNATING NOSTRILS
     Route: 045
     Dates: start: 20180622, end: 20180624
  6. UNSPECIFIED MEDICATION FOR HIGH CHOLESTEROL [Concomitant]

REACTIONS (7)
  - Throat irritation [Recovered/Resolved]
  - Nasal discomfort [Recovered/Resolved]
  - Product preparation error [Recovered/Resolved]
  - Pain in extremity [Recovering/Resolving]
  - Groin pain [Recovering/Resolving]
  - Dysgeusia [Recovered/Resolved]
  - Wrong technique in product usage process [Recovered/Resolved]

NARRATIVE: CASE EVENT DATE: 20180622
